FAERS Safety Report 12486559 (Version 2)
Quarter: 2016Q2

REPORT INFORMATION
  Report Type: Spontaneous
  Country: US (occurrence: US)
  Receive Date: 20160621
  Receipt Date: 20160629
  Transmission Date: 20160815
  Serious: Yes (Hospitalization)
  Sender: FDA-Public Use
  Company Number: US-TEVA-670202USA

PATIENT
  Sex: Male

DRUGS (1)
  1. ADRUCIL [Suspect]
     Active Substance: FLUOROURACIL
     Indication: OESOPHAGEAL CARCINOMA
     Dosage: 1800MG BOLUS, CONTINUOUS INFUSION OF 6480 MG OVER 46 HOURS
     Dates: start: 20160504, end: 20160607

REACTIONS (1)
  - Chest pain [Unknown]

NARRATIVE: CASE EVENT DATE: 2016
